FAERS Safety Report 7144857-2 (Version None)
Quarter: 2010Q4

REPORT INFORMATION
  Report Type: 
  Country: None (occurrence: None)
  Receive Date: 20101123
  Receipt Date: 20100909
  Transmission Date: 20110411
  Serious: Yes (Other)
  Sender: FDA-Public Use
  Company Number: DSA_43923_2010

PATIENT
  Age: 60 Year
  Sex: Female

DRUGS (1)
  1. APLENZIN [Suspect]
     Indication: PRODUCT USED FOR UNKNOWN INDICATION
     Dosage: (522 MG)

REACTIONS (1)
  - FACE OEDEMA [None]
